FAERS Safety Report 6237156-4 (Version None)
Quarter: 2009Q2

REPORT INFORMATION
  Report Type: 
  Country: None (occurrence: None)
  Receive Date: 20090619
  Receipt Date: 20090504
  Transmission Date: 20091009
  Serious: No
  Sender: FDA-Public Use
  Company Number: US-ASTRAZENECA-2009UW11327

PATIENT
  Age: 63 Year
  Sex: Female

DRUGS (4)
  1. SYMBICORT [Suspect]
     Route: 055
     Dates: start: 20080101
  2. DIOVAN [Concomitant]
  3. LYRICA [Concomitant]
  4. AMITRIPTYLINE [Concomitant]

REACTIONS (2)
  - MALAISE [None]
  - VOMITING [None]
